FAERS Safety Report 9291195 (Version 1)
Quarter: 2013Q2

REPORT INFORMATION
  Report Type: Report from Study
  Country: US (occurrence: US)
  Receive Date: 20130515
  Receipt Date: 20130515
  Transmission Date: 20140414
  Serious: Yes (Other)
  Sender: FDA-Public Use
  Company Number: US-ABBOTT-13P-163-1087805-00

PATIENT
  Age: 38 Year
  Sex: Female
  Weight: 69.01 kg

DRUGS (10)
  1. HUMIRA [Suspect]
     Indication: PSORIASIS
     Route: 058
     Dates: start: 201301
  2. HUMIRA [Suspect]
     Indication: PSORIATIC ARTHROPATHY
  3. AMITRIPTYLINE HCL [Concomitant]
     Indication: MIGRAINE
  4. METFORMIN [Concomitant]
     Indication: TYPE 2 DIABETES MELLITUS
  5. GLIPIZIDE [Concomitant]
     Indication: TYPE 2 DIABETES MELLITUS
  6. NORVASC [Concomitant]
     Indication: HYPERTENSION
  7. LOSARTAN [Concomitant]
     Indication: HYPERTENSION
  8. PRAVASTATIN [Concomitant]
     Indication: BLOOD CHOLESTEROL INCREASED
  9. ONGLYZA [Concomitant]
     Indication: TYPE 2 DIABETES MELLITUS
  10. BYDUREON [Concomitant]
     Indication: TYPE 2 DIABETES MELLITUS

REACTIONS (5)
  - Fatigue [Recovered/Resolved]
  - Hypotension [Recovered/Resolved]
  - Dehydration [Recovered/Resolved]
  - Injection site nodule [Recovered/Resolved]
  - Injection site pain [Not Recovered/Not Resolved]
